FAERS Safety Report 9401325 (Version 1)
Quarter: 2013Q3

REPORT INFORMATION
  Report Type: Spontaneous
  Country: ES (occurrence: ES)
  Receive Date: 20130715
  Receipt Date: 20130715
  Transmission Date: 20140515
  Serious: Yes (Hospitalization)
  Sender: FDA-Public Use
  Company Number: ES-009507513-1307ESP006161

PATIENT
  Age: 36 Year
  Sex: Male

DRUGS (4)
  1. ISENTRESS [Suspect]
     Indication: HIV INFECTION
     Dosage: 400 MG, BID
     Route: 048
     Dates: start: 20120904, end: 20130620
  2. INTELENCE [Interacting]
     Indication: HIV INFECTION
     Dosage: 400MG/12H
     Route: 048
     Dates: start: 20130528, end: 20130620
  3. PREZISTA [Interacting]
     Indication: HIV INFECTION
     Dosage: 600MG/12H
     Route: 048
     Dates: start: 20120904, end: 2013
  4. NORVIR [Interacting]
     Indication: HIV INFECTION
     Dosage: 100MG/12H
     Route: 048
     Dates: start: 20120904, end: 2013

REACTIONS (1)
  - Drug-induced liver injury [Recovering/Resolving]
